FAERS Safety Report 9677535 (Version 1)
Quarter: 2013Q4

REPORT INFORMATION
  Report Type: Spontaneous
  Country: FR (occurrence: FR)
  Receive Date: 20131108
  Receipt Date: 20131108
  Transmission Date: 20140711
  Serious: Yes (Hospitalization)
  Sender: FDA-Public Use
  Company Number: FR-JNJFOC-20131101496

PATIENT
  Age: 31 Year
  Sex: Female

DRUGS (2)
  1. REMICADE [Suspect]
     Indication: CROHN^S DISEASE
     Route: 042
  2. IMUREL [Suspect]
     Indication: CROHN^S DISEASE
     Dosage: IN THE MORNING
     Route: 042

REACTIONS (7)
  - Brain oedema [Recovered/Resolved]
  - Posterior reversible encephalopathy syndrome [Recovered/Resolved]
  - Hypertension [Unknown]
  - Ileal stenosis [Unknown]
  - Gastrointestinal fistula [Unknown]
  - Hypokalaemia [Unknown]
  - Arthralgia [Unknown]
